FAERS Safety Report 10533821 (Version 2)
Quarter: 2014Q4

REPORT INFORMATION
  Report Type: Spontaneous
  Country: AU (occurrence: AU)
  Receive Date: 20141022
  Receipt Date: 20141112
  Transmission Date: 20150529
  Serious: Yes (Death, Other)
  Sender: FDA-Public Use
  Company Number: AU-AMGEN-AUSSP2014080350

PATIENT
  Sex: Female

DRUGS (2)
  1. SENSIPAR [Suspect]
     Active Substance: CINACALCET HYDROCHLORIDE
     Indication: PRODUCT USED FOR UNKNOWN INDICATION
     Dosage: UNK
     Route: 065
     Dates: end: 201409
  2. WARFARIN [Concomitant]
     Active Substance: WARFARIN
     Dosage: UNK
     Dates: end: 201409

REACTIONS (11)
  - Aortic valve replacement [Unknown]
  - Limb operation [Unknown]
  - Metastases to lung [Unknown]
  - General physical health deterioration [Unknown]
  - Gastrointestinal haemorrhage [Unknown]
  - Pain [Unknown]
  - Metastases to gastrointestinal tract [Unknown]
  - Vascular graft [Unknown]
  - Blood calcium abnormal [Unknown]
  - Metastatic malignant melanoma [Fatal]
  - Metastases to liver [Unknown]

NARRATIVE: CASE EVENT DATE: 2013
